FAERS Safety Report 9365733 (Version 2)
Quarter: 2013Q3

REPORT INFORMATION
  Report Type: Spontaneous
  Country: AU (occurrence: AU)
  Receive Date: 20130625
  Receipt Date: 20130715
  Transmission Date: 20140515
  Serious: Yes (Other)
  Sender: FDA-Public Use
  Company Number: AU-009507513-1306AUS008532

PATIENT
  Age: 55 Year
  Sex: Male

DRUGS (2)
  1. CELESTONE CHRONODOSE [Suspect]
     Indication: NERVE BLOCK
     Dosage: UNK
     Dates: start: 200810, end: 200810
  2. CELESTONE CHRONODOSE [Suspect]
     Indication: SENSORY DISTURBANCE

REACTIONS (1)
  - Cerebrovascular accident [Unknown]
